FAERS Safety Report 24415748 (Version 2)
Quarter: 2024Q4

REPORT INFORMATION
  Report Type: Report from Study
  Country: US (occurrence: US)
  Receive Date: 20241009
  Receipt Date: 20241016
  Transmission Date: 20250115
  Serious: Yes (Other)
  Sender: ABBVIE
  Company Number: US-ABBVIE-5954054

PATIENT
  Age: 61 Year
  Sex: Male

DRUGS (1)
  1. SKYRIZI [Suspect]
     Active Substance: RISANKIZUMAB-RZAA
     Indication: Psoriasis
     Dosage: UNKNOWN
     Route: 058

REACTIONS (7)
  - Shoulder arthroplasty [Recovered/Resolved]
  - Arthritis [Unknown]
  - Exostosis [Unknown]
  - Osteoarthritis [Unknown]
  - Rotator cuff syndrome [Recovered/Resolved]
  - Pain [Unknown]
  - Cartilage injury [Unknown]

NARRATIVE: CASE EVENT DATE: 20241001
